FAERS Safety Report 12263432 (Version 2)
Quarter: 2016Q2

REPORT INFORMATION
  Report Type: Spontaneous
  Country: US (occurrence: US)
  Receive Date: 20160413
  Receipt Date: 20160502
  Transmission Date: 20160815
  Serious: Yes (Other)
  Sender: FDA-Public Use
  Company Number: US-SUNOVION-2016SUN000887

PATIENT
  Sex: Female

DRUGS (2)
  1. CRYSTAL METHAMPHETAMINE [Suspect]
     Active Substance: METHAMPHETAMINE
     Dosage: UNK
     Route: 065
  2. LATUDA [Suspect]
     Active Substance: LURASIDONE HYDROCHLORIDE
     Dosage: 20 MG, UNK
     Route: 048
     Dates: start: 201603

REACTIONS (4)
  - Drug abuse [Unknown]
  - Dependence [Unknown]
  - Thinking abnormal [Unknown]
  - Drug dependence [Unknown]
